FAERS Safety Report 9818040 (Version 1)
Quarter: 2013Q4

REPORT INFORMATION
  Report Type: Spontaneous
  Country: US (occurrence: None)
  Receive Date: 20131223
  Receipt Date: 20131223
  Transmission Date: 20140711
  Serious: No
  Sender: FDA-Public Use
  Company Number: 219831

PATIENT
  Age: 56 Year
  Sex: Male

DRUGS (1)
  1. PICATO [Suspect]
     Indication: ACTINIC KERATOSIS
     Dosage: (DAILY), TOPICAL
     Route: 061
     Dates: start: 20121103, end: 20121105

REACTIONS (5)
  - Burning sensation [None]
  - Erythema [None]
  - Skin exfoliation [None]
  - Blister [None]
  - Drug administered at inappropriate site [None]
